FAERS Safety Report 7551729-8 (Version None)
Quarter: 2011Q2

REPORT INFORMATION
  Report Type: 
  Country: None (occurrence: None)
  Receive Date: 20110616
  Receipt Date: 20110527
  Transmission Date: 20111010
  Serious: Yes (Hospitalization)
  Sender: FDA-Public Use
  Company Number: A0866138A

PATIENT
  Age: 46 Year
  Sex: Male

DRUGS (1)
  1. AVANDIA [Suspect]
     Dosage: 8MG PER DAY
     Dates: start: 20040201, end: 20060601

REACTIONS (4)
  - CARDIOVASCULAR DISORDER [None]
  - STRESS [None]
  - DEPRESSION [None]
  - MYOCARDIAL INFARCTION [None]
